FAERS Safety Report 8397606-4 (Version None)
Quarter: 2012Q2

REPORT INFORMATION
  Report Type: 
  Country: None (occurrence: None)
  Receive Date: 20120524
  Receipt Date: 20120510
  Transmission Date: 20120825
  Serious: Yes (Hospitalization, Other)
  Sender: FDA-Public Use
  Company Number: 2012P1008906

PATIENT
  Sex: Male
  Weight: 140.6151 kg

DRUGS (4)
  1. CASODEX [Suspect]
     Dates: start: 20110601
  2. UNSPECIFIED MEDICATIONS [Concomitant]
  3. WARFARIN SODIUM [Suspect]
     Indication: ATRIAL FIBRILLATION
     Dosage: 5-10MG;QD;PO ; 5-10MG;QD;PO
     Route: 048
     Dates: start: 20000101, end: 20110801
  4. WARFARIN SODIUM [Suspect]
     Indication: ATRIAL FIBRILLATION
     Dosage: 5-10MG;QD;PO ; 5-10MG;QD;PO
     Route: 048
     Dates: start: 20111201, end: 20120229

REACTIONS (11)
  - EYE HAEMORRHAGE [None]
  - BLINDNESS UNILATERAL [None]
  - THROMBOSIS [None]
  - PROSTATE CANCER RECURRENT [None]
  - PRODUCT SUBSTITUTION ISSUE [None]
  - PRODUCT QUALITY ISSUE [None]
  - BLOOD URINE PRESENT [None]
  - URINARY BLADDER HAEMORRHAGE [None]
  - INTERNATIONAL NORMALISED RATIO FLUCTUATION [None]
  - RENAL FAILURE [None]
  - OCULAR VASCULAR DISORDER [None]
